FAERS Safety Report 4814620-3 (Version None)
Quarter: 2005Q4

REPORT INFORMATION
  Report Type: 
  Country: None (occurrence: None)
  Receive Date: 20051028
  Receipt Date: 20050906
  Transmission Date: 20060501
  Serious: Yes (Hospitalization)
  Sender: FDA-Public Use
  Company Number: 2005/00387

PATIENT
  Age: 47 Year
  Sex: Female
  Weight: 61.2 kg

DRUGS (8)
  1. GW679769 [Suspect]
     Indication: PROPHYLAXIS OF NAUSEA AND VOMITING
     Dosage: 100MG PER DAY
     Route: 048
     Dates: start: 20050905, end: 20050905
  2. DEXAMETHASONE [Suspect]
     Indication: PROPHYLAXIS OF NAUSEA AND VOMITING
     Dosage: 8MG PER DAY
     Route: 042
     Dates: start: 20050905, end: 20050905
  3. ONDANSETRON [Suspect]
     Indication: PROPHYLAXIS OF NAUSEA AND VOMITING
     Dosage: 8MG TWICE PER DAY
     Route: 048
     Dates: start: 20050905, end: 20050905
  4. CARBOPLATIN [Suspect]
     Indication: CHEMOTHERAPY
     Dosage: 670MG PER DAY
     Route: 042
     Dates: start: 20050905, end: 20050905
  5. DIFENE [Concomitant]
     Indication: PAIN
     Dosage: 50MG PER DAY
     Route: 048
     Dates: start: 20050804
  6. PANTOPRAZOLE [Concomitant]
     Indication: GASTROOESOPHAGEAL REFLUX DISEASE
     Dosage: 40MG PER DAY
     Route: 048
     Dates: start: 20030101
  7. OXYBUTYNIN [Concomitant]
     Indication: URINARY INCONTINENCE
     Dosage: 5MG PER DAY
     Route: 048
     Dates: start: 20041201
  8. ACETAMINOPHEN [Concomitant]
     Indication: PAIN
     Dosage: 1G PER DAY
     Route: 048
     Dates: start: 20050905

REACTIONS (7)
  - ABDOMINAL PAIN [None]
  - CHILLS [None]
  - DIZZINESS [None]
  - DYSPNOEA [None]
  - HYPERTENSION [None]
  - PLEURITIC PAIN [None]
  - RASH [None]
